FAERS Safety Report 16756269 (Version 1)
Quarter: 2019Q3

REPORT INFORMATION
  Report Type: Spontaneous
  Country: ES (occurrence: ES)
  Receive Date: 20190829
  Receipt Date: 20190829
  Transmission Date: 20191005
  Serious: Yes (Disabling, Other)
  Sender: FDA-Public Use
  Company Number: ES-ASTRAZENECA-2019SF19824

PATIENT
  Age: 71 Year
  Sex: Female

DRUGS (10)
  1. QUETIAPINE. [Suspect]
     Active Substance: QUETIAPINE
     Dosage: 200 MG IN BREAKFAST AND DINNER
     Route: 048
  2. PREGABALINE [Interacting]
     Active Substance: PREGABALIN
     Route: 065
  3. BROMAZEPAM [Concomitant]
     Active Substance: BROMAZEPAM
     Dosage: 3 MG/8H
  4. OXCARBAZEPINE. [Interacting]
     Active Substance: OXCARBAZEPINE
     Dosage: 300 MG/12 H (RE-STARTED 3 MONTHS AGO)
     Route: 065
  5. ACETYLSALICYLIC ACID [Concomitant]
     Active Substance: ASPIRIN
     Dosage: 100 MILLIGRAM DAILY;
  6. POTASSIUM LOSARTAN [Concomitant]
     Dosage: 100 MG AT BREAKFAST
  7. OMEPRAZOLE. [Concomitant]
     Active Substance: OMEPRAZOLE
     Dosage: 20 MILLIGRAM DAILY;
  8. QUETIAPINE. [Interacting]
     Active Substance: QUETIAPINE
     Route: 048
  9. AMLODIPINE [Interacting]
     Active Substance: AMLODIPINE BESYLATE
     Dosage: 5 MILLIGRAM DAILY; AT BREAKFAST
     Route: 065
  10. SIMVASTATIN. [Concomitant]
     Active Substance: SIMVASTATIN
     Dosage: 10 MG AT DINNER

REACTIONS (10)
  - Physical disability [Recovered/Resolved]
  - Anal incontinence [Recovered/Resolved]
  - Insomnia [Recovered/Resolved]
  - Parkinsonism [Recovered/Resolved]
  - Muscle rigidity [Recovered/Resolved]
  - Drug interaction [Recovered/Resolved]
  - Bradykinesia [Recovered/Resolved]
  - Memory impairment [Recovered/Resolved]
  - Speech disorder [Recovered/Resolved]
  - Dependence [Recovered/Resolved]
